FAERS Safety Report 4367623-X (Version None)
Quarter: 2004Q2

REPORT INFORMATION
  Report Type: 
  Country: None (occurrence: None)
  Receive Date: 20040526
  Receipt Date: 20040402
  Transmission Date: 20050107
  Serious: Yes (Hospitalization)
  Sender: FDA-Public Use
  Company Number: 2004US002083

PATIENT
  Age: 49 Year
  Sex: Female
  Weight: 83 kg

DRUGS (6)
  1. ALOXI [Suspect]
     Indication: PROPHYLAXIS OF NAUSEA AND VOMITING
     Dosage: 0.25 MG, SINGLE, INTRAVENOUS
     Route: 042
     Dates: start: 20040401, end: 20040401
  2. ADRIAMYCIN PFS [Concomitant]
  3. DEXTROSE INFUSION FLUID 5% (GLUCOSE) [Concomitant]
  4. BENADRYL [Concomitant]
  5. DEXAMETHASONE [Concomitant]
  6. CYTOXAN [Concomitant]

REACTIONS (1)
  - HEADACHE [None]
